FAERS Safety Report 18051404 (Version 6)
Quarter: 2022Q2

REPORT INFORMATION
  Report Type: Spontaneous
  Country: DE (occurrence: DE)
  Receive Date: 20200721
  Receipt Date: 20220415
  Transmission Date: 20220721
  Serious: Yes (Hospitalization, Other)
  Sender: FDA-Public Use
  Company Number: NVSC2020DE201875

PATIENT
  Sex: Male
  Weight: 19.7 kg

DRUGS (11)
  1. CYCLOPHOSPHAMIDE [Suspect]
     Active Substance: CYCLOPHOSPHAMIDE
     Indication: Foetal exposure during pregnancy
     Dosage: MATERNAL DOSE OF 750 MG/M2 OVER 1-HOUR ON DAY 2 (REPEATED DAY 21, TOTAL OF 5 CYCLES)
     Route: 064
  2. PREDNISOLONE [Suspect]
     Active Substance: PREDNISOLONE
     Indication: Foetal exposure during pregnancy
     Dosage: MATERNAL DOSE OF 100 MG ORALLY ON DAYS 2-5 (REPEATED DAY 21, TOTAL OF 5 CYCLES)
     Route: 064
  3. FILGRASTIM [Suspect]
     Active Substance: FILGRASTIM
     Indication: Foetal exposure during pregnancy
     Dosage: MATERNAL DOSE OF 10 MICROGRAM/KILOGRAM/DAY ON DAYS 6-11
     Route: 064
  4. RITUXIMAB [Suspect]
     Active Substance: RITUXIMAB
     Indication: Foetal exposure during pregnancy
     Dosage: MATERNAL DOSE OF 375 MG/M2 OVER 3-HOURS ON DAY 1 (REPEATED DAY 21, TOTAL OF 5 CYCLES)
     Route: 064
  5. DOXORUBICIN [Suspect]
     Active Substance: DOXORUBICIN
     Indication: Foetal exposure during pregnancy
     Dosage: MATERNAL DOSE OF 50 MG/M2 OVER 30-MINUTES ON DAY 2 (REPEATED DAY 21, TOTAL OF 5 CYCLES)
     Route: 064
  6. ETOPOSIDE [Suspect]
     Active Substance: ETOPOSIDE
     Indication: Foetal exposure during pregnancy
     Dosage: MATERNAL DOSE OF 100 MG/M2 1-HOUR ON DAYS 2-4 (REPEATED DAY 21, TOTAL OF 5 CYCLES)
     Route: 064
  7. MESNA [Suspect]
     Active Substance: MESNA
     Indication: Foetal exposure during pregnancy
     Dosage: MATERNAL DOSE OF 200 MG/M2 AT 0, 4 AND 8 HOURS AFTER CPA DAY 2
     Route: 064
  8. DEXAMETHASONE [Suspect]
     Active Substance: DEXAMETHASONE
     Indication: Foetal exposure during pregnancy
     Dosage: MATERNAL DOSE OF 4 MG ON DAYS 2 AND 6
     Route: 064
  9. CYTARABINE [Suspect]
     Active Substance: CYTARABINE
     Indication: Foetal exposure during pregnancy
     Dosage: MATERNAL DOSE OF 150 MG/M2 OVER 1 HR EVRY 12 H ON DAYS 2-6
     Route: 064
  10. CYTARABINE [Suspect]
     Active Substance: CYTARABINE
     Dosage: MATERNAL DOSE OF 40 MG ON DAY 2 AND 6
     Route: 064
  11. VINCRISTINE [Suspect]
     Active Substance: VINCRISTINE
     Indication: Foetal exposure during pregnancy
     Dosage: MATERNAL DOSE OF 2 MG ON DAY 2 (REPEATED DAY 21, TOTAL OF 5 CYCLES)
     Route: 064

REACTIONS (5)
  - Small for dates baby [Unknown]
  - Low birth weight baby [Recovered/Resolved]
  - Foetal growth restriction [Unknown]
  - Premature baby [Unknown]
  - Foetal exposure during pregnancy [Unknown]
